FAERS Safety Report 24831243 (Version 1)
Quarter: 2025Q1

REPORT INFORMATION
  Report Type: Spontaneous
  Country: US (occurrence: US)
  Receive Date: 20250110
  Receipt Date: 20250110
  Transmission Date: 20250408
  Serious: Yes (Other)
  Sender: ELI LILLY AND COMPANY
  Company Number: US-ELI_LILLY_AND_COMPANY-US202412018878

PATIENT
  Age: 67 Year
  Sex: Male

DRUGS (2)
  1. DULAGLUTIDE [Suspect]
     Active Substance: DULAGLUTIDE
     Indication: Type 2 diabetes mellitus
     Dosage: 0.75 MG PER 0.5 ML, WEEKLY (1/W)
     Route: 058
  2. DULAGLUTIDE [Suspect]
     Active Substance: DULAGLUTIDE
     Dosage: 1.5 MG PER 0.5 ML, WEEKLY (1/W)
     Route: 058

REACTIONS (2)
  - Large intestine perforation [Unknown]
  - Colitis ischaemic [Unknown]
